FAERS Safety Report 7173083-6 (Version None)
Quarter: 2010Q4

REPORT INFORMATION
  Report Type: 
  Country: None (occurrence: None)
  Receive Date: 20101219
  Receipt Date: 20100219
  Transmission Date: 20110411
  Serious: Yes (Other)
  Sender: FDA-Public Use
  Company Number: US-AMGEN-KDL394217

PATIENT

DRUGS (1)
  1. ENBREL [Suspect]
     Indication: RHEUMATOID ARTHRITIS
     Dosage: 50 MG, QWK
     Route: 058
     Dates: start: 20021129

REACTIONS (4)
  - BREAST CANCER [None]
  - ROTATOR CUFF REPAIR [None]
  - TOE OPERATION [None]
  - URINARY TRACT INFECTION [None]
